FAERS Safety Report 25684421 (Version 1)
Quarter: 2025Q3

REPORT INFORMATION
  Report Type: 
  Country: CN (occurrence: CN)
  Receive Date: 20250815
  Receipt Date: 20250815
  Transmission Date: 20251021
  Serious: Yes (Other)
  Sender: AKESO BIOPHARMA CO., LTD.
  Company Number: CN-Akeso Biopharma Co., Ltd.-2182553

PATIENT
  Age: 66 Year
  Sex: Male
  Weight: 71 kg

DRUGS (1)
  1. PENPULIMAB-KCQX [Suspect]
     Active Substance: PENPULIMAB-KCQX
     Indication: Nasopharyngeal cancer
     Dates: start: 20250410, end: 20250410

REACTIONS (4)
  - Hypopituitarism [Unknown]
  - Myelosuppression [Recovering/Resolving]
  - Hypothyroidism [Unknown]
  - Cortisol decreased [Unknown]

NARRATIVE: CASE EVENT DATE: 20250419
